FAERS Safety Report 9059238 (Version 2)
Quarter: 2013Q1

REPORT INFORMATION
  Report Type: Report from Study
  Country: US (occurrence: US)
  Receive Date: 20130211
  Receipt Date: 20130227
  Transmission Date: 20140127
  Serious: Yes (Other)
  Sender: FDA-Public Use
  Company Number: US-CELGENEUS-163-21880-13020589

PATIENT
  Age: 71 Year
  Sex: Male
  Weight: 102.8 kg

DRUGS (4)
  1. REVLIMID [Suspect]
     Indication: PLASMA CELL MYELOMA
     Dosage: 15 MILLIGRAM
     Route: 048
     Dates: start: 20080102
  2. REVLIMID [Suspect]
     Dosage: 15 MILLIGRAM
     Route: 048
     Dates: start: 20120614, end: 20120614
  3. DECITABINE [Concomitant]
     Indication: ACUTE MYELOID LEUKAEMIA
  4. TRETINOIN [Concomitant]
     Indication: ACUTE MYELOID LEUKAEMIA

REACTIONS (1)
  - Squamous cell carcinoma of skin [Not Recovered/Not Resolved]
